FAERS Safety Report 4987261-5 (Version None)
Quarter: 2006Q2

REPORT INFORMATION
  Report Type: 
  Country: None (occurrence: None)
  Receive Date: 20060501
  Receipt Date: 20051229
  Transmission Date: 20061013
  Serious: Yes (Disabling)
  Sender: FDA-Public Use
  Company Number: US-MERCK-0512USA04095

PATIENT
  Age: 16 Year
  Sex: Male
  Weight: 67 kg

DRUGS (3)
  1. VIOXX [Suspect]
     Indication: JOINT INJURY
     Route: 048
     Dates: start: 20030201, end: 20030801
  2. VIOXX [Suspect]
     Route: 048
     Dates: start: 20030801, end: 20040501
  3. EXTRA STRENGTH TYLENOL [Concomitant]
     Route: 065

REACTIONS (7)
  - BRADYCARDIA [None]
  - CHEST PAIN [None]
  - HYPOTENSION [None]
  - MITRAL VALVE PROLAPSE [None]
  - SYNCOPE [None]
  - VIRAL INFECTION [None]
  - WEIGHT DECREASED [None]
